FAERS Safety Report 13066895 (Version 1)
Quarter: 2016Q4

REPORT INFORMATION
  Report Type: Spontaneous
  Country: JP (occurrence: JP)
  Receive Date: 20161227
  Receipt Date: 20161227
  Transmission Date: 20170207
  Serious: Yes (Disabling, Other)
  Sender: FDA-Public Use
  Company Number: JP-MYLANLABS-2016M1047965

PATIENT

DRUGS (3)
  1. EPIRUBICIN MYLAN [Suspect]
     Active Substance: EPIRUBICIN
     Dosage: UNK, CYCLE
     Route: 041
     Dates: start: 20161108, end: 20161108
  2. EPIRUBICIN MYLAN [Suspect]
     Active Substance: EPIRUBICIN
     Indication: SQUAMOUS CELL CARCINOMA OF SKIN
     Dosage: 102.66 MG, CYCLE
     Route: 040
     Dates: start: 20161019, end: 20161019
  3. CARBOPLATIN MYLAN [Suspect]
     Active Substance: CARBOPLATIN
     Indication: SQUAMOUS CELL CARCINOMA OF SKIN
     Dosage: 684.4 MG, CYCLE
     Route: 041
     Dates: start: 20161018, end: 20161018

REACTIONS (2)
  - Skin ulcer [Recovering/Resolving]
  - Neutrophil count decreased [Recovering/Resolving]

NARRATIVE: CASE EVENT DATE: 20161019
